FAERS Safety Report 6310814-9 (Version None)
Quarter: 2009Q3

REPORT INFORMATION
  Report Type: 
  Country: None (occurrence: None)
  Receive Date: 20090812
  Receipt Date: 20090803
  Transmission Date: 20100115
  Serious: Yes (Other)
  Sender: FDA-Public Use
  Company Number: TPA2009A02200

PATIENT
  Age: 77 Year
  Sex: Male
  Weight: 113.3993 kg

DRUGS (3)
  1. ACTOS [Suspect]
     Indication: TYPE 2 DIABETES MELLITUS
     Dosage: PER ORAL
     Route: 048
     Dates: start: 20070803, end: 20090720
  2. UNKNOWN HIGH BLOOD PRESSURE MEDICATION (ALL OTHER NON-THERAPEUTIC PROD [Concomitant]
  3. GLYBURIDE [Concomitant]

REACTIONS (5)
  - ATRIAL FIBRILLATION [None]
  - BLOOD POTASSIUM INCREASED [None]
  - DYSPNOEA [None]
  - FLUID RETENTION [None]
  - WEIGHT INCREASED [None]
